FAERS Safety Report 6194011-6 (Version None)
Quarter: 2009Q2

REPORT INFORMATION
  Report Type: 
  Country: None (occurrence: None)
  Receive Date: 20090518
  Receipt Date: 20090515
  Transmission Date: 20091009
  Serious: Yes (Death, Life-Threatening)
  Sender: FDA-Public Use
  Company Number: PHHY2009JP17684

PATIENT
  Sex: Male

DRUGS (9)
  1. DIOVAN T30230+TAB+HY [Suspect]
     Dosage: 80 MG, QD
     Route: 048
     Dates: start: 20080513
  2. ARTIST [Concomitant]
     Indication: HYPERTENSION
     Dosage: 10 MG
     Route: 048
     Dates: end: 20090429
  3. ASPIRIN [Concomitant]
     Dosage: 100 MG
     Route: 048
     Dates: end: 20090429
  4. PANALDINE [Concomitant]
     Dosage: 200 MG
     Route: 048
     Dates: end: 20090429
  5. SIGMART [Concomitant]
     Dosage: 15 MG
     Route: 048
     Dates: end: 20090429
  6. NITRODERM [Concomitant]
     Dosage: 1 DF, UNK
     Route: 062
     Dates: end: 20090429
  7. MEVALOTIN [Concomitant]
     Dosage: 20 MG
     Route: 048
     Dates: end: 20090429
  8. AMARYL [Concomitant]
     Dosage: 1 MG
     Route: 048
     Dates: end: 20090429
  9. METFORMIN HCL [Concomitant]
     Dosage: 500 MG
     Route: 048
     Dates: end: 20090429

REACTIONS (1)
  - BRAIN STEM HAEMORRHAGE [None]
